FAERS Safety Report 10483244 (Version 2)
Quarter: 2014Q4

REPORT INFORMATION
  Report Type: Spontaneous
  Country: US (occurrence: US)
  Receive Date: 20140930
  Receipt Date: 20141231
  Transmission Date: 20150528
  Serious: No
  Sender: FDA-Public Use
  Company Number: US-BIOGENIDEC-2014BI097424

PATIENT
  Age: 51 Year
  Sex: Female

DRUGS (2)
  1. TECFIDERA [Suspect]
     Active Substance: DIMETHYL FUMARATE
     Indication: RELAPSING-REMITTING MULTIPLE SCLEROSIS
  2. TECFIDERA [Suspect]
     Active Substance: DIMETHYL FUMARATE
     Indication: RELAPSING-REMITTING MULTIPLE SCLEROSIS
     Dates: start: 20130913

REACTIONS (7)
  - Peripheral swelling [Not Recovered/Not Resolved]
  - Mass [Not Recovered/Not Resolved]
  - Weight abnormal [Unknown]
  - Increased tendency to bruise [Unknown]
  - Animal bite [Recovered/Resolved with Sequelae]
  - Joint injury [Recovered/Resolved with Sequelae]
  - Gait disturbance [Unknown]

NARRATIVE: CASE EVENT DATE: 201409
